FAERS Safety Report 23306843 (Version 1)
Quarter: 2023Q4

REPORT INFORMATION
  Report Type: Spontaneous
  Country: US (occurrence: US)
  Receive Date: 20231218
  Receipt Date: 20231218
  Transmission Date: 20240110
  Serious: No
  Sender: FDA-Public Use
  Company Number: US-RECKITT BENCKISER HEALTHCARE INT LIMITED-RB-106232-2022

PATIENT
  Age: 77 Year
  Sex: Female
  Weight: 62.73 kg

DRUGS (3)
  1. DELSYM [Suspect]
     Active Substance: DEXTROMETHORPHAN
     Indication: Product used for unknown indication
     Dosage: THE PATIENT TOOK 1 DOSE PER LABEL
     Route: 048
     Dates: start: 20221107, end: 20221107
  2. Clopidogrel Unknown [Concomitant]
     Indication: Product used for unknown indication
     Dosage: UNK
     Route: 065
  3. Simvastatin Unknown [Concomitant]
     Indication: Product used for unknown indication
     Dosage: UNK
     Route: 065

REACTIONS (2)
  - Dizziness [Recovered/Resolved]
  - Dry mouth [Recovered/Resolved]

NARRATIVE: CASE EVENT DATE: 20221108
